FAERS Safety Report 17870606 (Version 2)
Quarter: 2023Q2

REPORT INFORMATION
  Report Type: Spontaneous
  Country: US (occurrence: US)
  Receive Date: 20200608
  Receipt Date: 20230605
  Transmission Date: 20230722
  Serious: No
  Sender: FDA-Public Use
  Company Number: US-PFIZER INC-2019343912

PATIENT
  Age: 77 Year
  Sex: Female

DRUGS (2)
  1. IBRANCE [Suspect]
     Active Substance: PALBOCICLIB
     Indication: Breast cancer female
     Dosage: 100 MG
     Route: 048
  2. IBRANCE [Suspect]
     Active Substance: PALBOCICLIB
     Dosage: 100 MG, 5 TIMES WEEKLY (MON, TUE, WED, THU, FRI), FOR 21 DAYS / 7 DAYS OF REST (28 DAYS CYCLE)
     Route: 048

REACTIONS (2)
  - Decreased immune responsiveness [Unknown]
  - Off label use [Unknown]
